FAERS Safety Report 8375972 (Version 2)
Quarter: 2013Q1

REPORT INFORMATION
  Report Type: Report from Study
  Country: US (occurrence: US)
  Receive Date: 20120129
  Receipt Date: 20130129
  Transmission Date: 20140127
  Serious: No
  Sender: FDA-Public Use
  Company Number: US-ABBOTT-11P-163-0887123-00

PATIENT
  Sex: Female

DRUGS (3)
  1. HUMIRA 40 MG/0.8 ML PEN [Suspect]
     Indication: PSORIASIS
     Dates: start: 201103, end: 201111
  2. HUMIRA 40 MG/0.8 ML PEN [Suspect]
     Dosage: RESTART
     Dates: start: 20120201
  3. PROZAC [Concomitant]
     Indication: DEPRESSION
     Dosage: DAILY

REACTIONS (2)
  - Hepatic enzyme increased [Recovered/Resolved]
  - Blood cholesterol increased [Not Recovered/Not Resolved]
